FAERS Safety Report 9030052 (Version 2)
Quarter: 2013Q2

REPORT INFORMATION
  Report Type: Spontaneous
  Country: US (occurrence: US)
  Receive Date: 20130125
  Receipt Date: 20130529
  Transmission Date: 20140414
  Serious: No
  Sender: FDA-Public Use
  Company Number: US-BIOGENIDEC-2013BI006005

PATIENT
  Sex: Female

DRUGS (2)
  1. TYSABRI [Suspect]
     Indication: MULTIPLE SCLEROSIS
     Route: 042
     Dates: start: 20110125
  2. AMPYRA [Concomitant]

REACTIONS (12)
  - Diarrhoea [Recovered/Resolved]
  - Sensation of heaviness [Unknown]
  - Crying [Recovered/Resolved]
  - Bladder disorder [Unknown]
  - Gastrointestinal disorder [Unknown]
  - Peroneal nerve palsy [Unknown]
  - Pain in extremity [Unknown]
  - Migraine [Not Recovered/Not Resolved]
  - Mental impairment [Not Recovered/Not Resolved]
  - Fatigue [Not Recovered/Not Resolved]
  - Nausea [Not Recovered/Not Resolved]
  - Asthenia [Unknown]
